FAERS Safety Report 11567908 (Version 2)
Quarter: 2016Q1

REPORT INFORMATION
  Report Type: Spontaneous
  Country: US (occurrence: US)
  Receive Date: 20150929
  Receipt Date: 20160113
  Transmission Date: 20160525
  Serious: No
  Sender: FDA-Public Use
  Company Number: US-009507513-1509USA013386

PATIENT
  Sex: Female
  Weight: 100.7 kg

DRUGS (1)
  1. NEXPLANON [Suspect]
     Active Substance: ETONOGESTREL
     Indication: CONTRACEPTION
     Dosage: DOSE/FREQUENCY: 68MG/ THREE YEARS
     Route: 059
     Dates: start: 20130812, end: 20150922

REACTIONS (2)
  - Device breakage [Recovered/Resolved]
  - No adverse event [Unknown]
